FAERS Safety Report 10885243 (Version 2)
Quarter: 2016Q1

REPORT INFORMATION
  Report Type: Report from Study
  Country: JP (occurrence: JP)
  Receive Date: 20150304
  Receipt Date: 20160311
  Transmission Date: 20160525
  Serious: Yes (Hospitalization)
  Sender: FDA-Public Use
  Company Number: JP-009507513-1402JPN007693

PATIENT
  Age: 71 Year
  Sex: Male

DRUGS (14)
  1. TAMBOCOR [Concomitant]
     Active Substance: FLECAINIDE ACETATE
     Indication: ATRIAL FIBRILLATION
     Dosage: 50 MG, BID
     Route: 065
     Dates: end: 20130107
  2. CELSENTRI [Suspect]
     Active Substance: MARAVIROC
     Dosage: 300 MG, QD (DIVIDED DOSE FREQUENCY UNKNOWN)
     Route: 048
     Dates: start: 20130930, end: 20131006
  3. LASIX [Concomitant]
     Active Substance: FUROSEMIDE
     Indication: HYPERKALAEMIA
     Dosage: 20 MG, QD
     Route: 065
  4. INTELENCE [Suspect]
     Active Substance: ETRAVIRINE
     Indication: HIV INFECTION
     Dosage: 200 MG, QD (DAILY DOSE REPORTED AS EVERY)
     Route: 048
     Dates: start: 20110615
  5. BAYASPIRIN [Concomitant]
     Active Substance: ASPIRIN
     Indication: CEREBRAL INFARCTION
     Dosage: 100 MG, QD
     Route: 048
  6. CELSENTRI [Suspect]
     Active Substance: MARAVIROC
     Dosage: 1200 MG, QD (DIVIDED DOSE FREQUENCY UNKNOWN))
     Route: 048
     Dates: start: 20131007
  7. OLMETEC [Suspect]
     Active Substance: OLMESARTAN MEDOXOMIL
     Indication: HYPERTENSION
     Dosage: 40 MG, QD
     Route: 048
     Dates: end: 20121217
  8. ALOSITOL [Concomitant]
     Active Substance: ALLOPURINOL
     Indication: HYPERURICAEMIA
     Dosage: 100 MG, BID
     Route: 048
  9. ISENTRESS [Suspect]
     Active Substance: RALTEGRAVIR POTASSIUM
     Indication: HIV INFECTION
     Dosage: 800 MG, DAILY (DIVIDED DOSE FREQUENCY UNKNOWN) EVERY
     Route: 048
     Dates: start: 20110615
  10. CELSENTRI [Suspect]
     Active Substance: MARAVIROC
     Dosage: 600 MG, QD (DIVIDED DOSE FREQUENCY UNKNOWN))
     Route: 048
     Dates: start: 20130805, end: 20130908
  11. INTELENCE [Suspect]
     Active Substance: ETRAVIRINE
     Dosage: 400 MG, QD (DAILY DOSE REPORTED AS EVERY)
     Route: 048
     Dates: start: 20130512
  12. CELSENTRI [Suspect]
     Active Substance: MARAVIROC
     Indication: HIV INFECTION
     Dosage: 1200 MG, QD (DIVIDED DOSE FREQUENCY UNKNOWN))
     Route: 048
     Dates: start: 20110615, end: 20130804
  13. CELSENTRI [Suspect]
     Active Substance: MARAVIROC
     Dosage: 1200 MG, QD (DIVIDED DOSE FREQUENCY UNKNOWN))
     Route: 048
     Dates: start: 20130909, end: 20130929
  14. AMLODIN (AMLODIPINE BESYLATE) [Concomitant]
     Active Substance: AMLODIPINE BESYLATE
     Indication: HYPERTENSION
     Dosage: 10 MG, QD
     Route: 048

REACTIONS (3)
  - Hyperkalaemia [Recovered/Resolved]
  - Glaucoma [Recovering/Resolving]
  - Vitreous haemorrhage [Recovered/Resolved]

NARRATIVE: CASE EVENT DATE: 20121029
